FAERS Safety Report 5025733-8 (Version None)
Quarter: 2006Q2

REPORT INFORMATION
  Report Type: 
  Country: None (occurrence: None)
  Receive Date: 20060614
  Receipt Date: 20060504
  Transmission Date: 20061013
  Serious: Yes (Death, Hospitalization)
  Sender: FDA-Public Use
  Company Number: US-BRISTOL-MYERS SQUIBB COMPANY-13366323

PATIENT
  Age: 71 Year
  Sex: Male
  Weight: 113 kg

DRUGS (9)
  1. COUMADIN [Suspect]
  2. PLAVIX [Suspect]
  3. ALLOPURINOL [Concomitant]
  4. IMDUR [Concomitant]
  5. LANOXIN [Concomitant]
  6. VYTORIN [Concomitant]
  7. COREG [Concomitant]
  8. HUMULIN 70/30 [Concomitant]
  9. LASIX [Concomitant]

REACTIONS (1)
  - MYOCARDIAL INFARCTION [None]
